FAERS Safety Report 7945954-1 (Version None)
Quarter: 2011Q4

REPORT INFORMATION
  Report Type: 
  Country: None (occurrence: None)
  Receive Date: 20111129
  Receipt Date: 20111125
  Transmission Date: 20120403
  Serious: Yes (Death, Hospitalization, Other)
  Sender: FDA-Public Use
  Company Number: PHHY2011JP103949

PATIENT
  Sex: Female

DRUGS (12)
  1. AMLODIPINE [Concomitant]
     Dosage: 1.25 MG, UNK
     Route: 048
     Dates: end: 20090902
  2. BLOOD TRANSFUSION, AUXILIARY PRODUCTS [Concomitant]
     Dosage: BEFORE EXJADE THERAPY WAS STARTED:186 UNITS
     Dates: start: 20090715
  3. VITAMEDIN CAPSULE [Concomitant]
     Dosage: 50 DF, UNK
     Route: 048
     Dates: end: 20091007
  4. ALFAROL [Concomitant]
     Dosage: 0.25 MG, UNK
     Route: 048
     Dates: end: 20091123
  5. PLATELETS [Concomitant]
     Dosage: 15 UNITS EVERY WEEK
     Dates: start: 20091123, end: 20091202
  6. FOSAMAX [Concomitant]
     Dosage: 35 MG, UNK
     Route: 048
     Dates: end: 20091007
  7. EXJADE [Suspect]
     Indication: IRON OVERLOAD
     Dosage: 250 MG DAILY
     Route: 048
     Dates: start: 20090715, end: 20091105
  8. PREDNISOLONE [Suspect]
     Dosage: 5 MG DAILY
     Route: 048
     Dates: end: 20091123
  9. DEPAS [Concomitant]
     Dosage: 2 MG, UNK
     Route: 048
     Dates: end: 20091023
  10. ALLOPURINOL [Concomitant]
     Dosage: 100 MG, UNK
     Route: 048
     Dates: end: 20091007
  11. BLOOD TRANSFUSION, AUXILIARY PRODUCTS [Concomitant]
     Dates: start: 20070420
  12. RED BLOOD CELLS, CONCENTRATED [Concomitant]
     Dosage: 4 UNITS EVERY 2 WEEKS
     Dates: start: 20090715, end: 20091206

REACTIONS (8)
  - SEPSIS [None]
  - HEPATIC FUNCTION ABNORMAL [None]
  - DECREASED APPETITE [None]
  - RENAL IMPAIRMENT [None]
  - URINARY TRACT INFECTION [None]
  - HAEMOGLOBIN DECREASED [None]
  - FLUID INTAKE REDUCED [None]
  - RHEUMATOID ARTHRITIS [None]
